FAERS Safety Report 6131201-2 (Version None)
Quarter: 2009Q1

REPORT INFORMATION
  Report Type: 
  Country: None (occurrence: None)
  Receive Date: 20090325
  Receipt Date: 20090318
  Transmission Date: 20090719
  Serious: Yes (Hospitalization)
  Sender: FDA-Public Use
  Company Number: US-BAYER-200910747BCC

PATIENT
  Age: 42 Year
  Sex: Female
  Weight: 79 kg

DRUGS (3)
  1. ALKA SELTZER PLUS SPARKLING ORIGINAL [Suspect]
     Indication: NASOPHARYNGITIS
     Dosage: UNIT DOSE: 1 DF
     Dates: start: 20090309
  2. PEPCID [Concomitant]
  3. FIORICET [Concomitant]
     Indication: HEADACHE

REACTIONS (5)
  - CEREBROVASCULAR ACCIDENT [None]
  - FACIAL PALSY [None]
  - HEMIPLEGIA [None]
  - HYPERHIDROSIS [None]
  - HYPOAESTHESIA [None]
